FAERS Safety Report 9490337 (Version 1)
Quarter: 2013Q3

REPORT INFORMATION
  Report Type: Spontaneous
  Country: US (occurrence: US)
  Receive Date: 20130830
  Receipt Date: 20130830
  Transmission Date: 20140515
  Serious: Yes (Hospitalization, Other)
  Sender: FDA-Public Use
  Company Number: US-PAR PHARMACEUTICAL, INC-2013SCPR006130

PATIENT
  Sex: 0

DRUGS (2)
  1. DIAZEPAM [Suspect]
     Indication: PRODUCT USED FOR UNKNOWN INDICATION
     Dosage: UNK UNK, UNKNOWN, APPROX. 40 TO 50 TABLETS
     Route: 048
  2. METHADONE [Suspect]
     Indication: PRODUCT USED FOR UNKNOWN INDICATION
     Dosage: UNK, UNKNOWN
     Route: 048

REACTIONS (7)
  - Suicide attempt [Unknown]
  - Hypoxia [Recovered/Resolved]
  - Leukoencephalopathy [Recovered/Resolved]
  - Pneumonia aspiration [Recovered/Resolved]
  - Social avoidant behaviour [Recovered/Resolved]
  - Overdose [Unknown]
  - Incontinence [Recovered/Resolved]
